FAERS Safety Report 9541232 (Version 1)
Quarter: 2013Q3

REPORT INFORMATION
  Report Type: Spontaneous
  Country: US (occurrence: US)
  Receive Date: 20130923
  Receipt Date: 20130923
  Transmission Date: 20140515
  Serious: No
  Sender: FDA-Public Use
  Company Number: US-BIOGENIDEC-2013BI088955

PATIENT
  Sex: Female

DRUGS (2)
  1. TYSABRI [Suspect]
     Indication: MULTIPLE SCLEROSIS
     Route: 042
     Dates: start: 20111110
  2. AMPYRA [Concomitant]
     Indication: MULTIPLE SCLEROSIS
     Dates: start: 20110615

REACTIONS (1)
  - Feeling abnormal [Unknown]
